FAERS Safety Report 10191952 (Version 5)
Quarter: 2014Q4

REPORT INFORMATION
  Report Type: Spontaneous
  Country: US (occurrence: US)
  Receive Date: 20140523
  Receipt Date: 20141105
  Transmission Date: 20150528
  Serious: Yes (Hospitalization)
  Sender: FDA-Public Use
  Company Number: US-BAYER-2014-076650

PATIENT
  Age: 46 Year
  Sex: Female
  Weight: 104 kg

DRUGS (2)
  1. MIRENA [Suspect]
     Active Substance: LEVONORGESTREL
     Dosage: 20 MCG/24HR, CONT
     Route: 015
     Dates: start: 20080319, end: 20101208
  2. MIRENA [Suspect]
     Active Substance: LEVONORGESTREL
     Dosage: 20 MCG/24HR, CONT
     Route: 015
     Dates: start: 20101208, end: 20130517

REACTIONS (6)
  - Embedded device [None]
  - Device breakage [None]
  - Complication of device removal [None]
  - Pain [None]
  - Injury [None]
  - Device difficult to use [None]

NARRATIVE: CASE EVENT DATE: 201305
